FAERS Safety Report 21571753 (Version 1)
Quarter: 2022Q4

REPORT INFORMATION
  Report Type: Spontaneous
  Country: US (occurrence: None)
  Receive Date: 20221108
  Receipt Date: 20221108
  Transmission Date: 20230113
  Serious: Yes (Disabling)
  Sender: FDA-Public Use
  Company Number: None

PATIENT
  Age: 72 Year
  Sex: Female
  Weight: 54 kg

DRUGS (9)
  1. PAXLOVID [Suspect]
     Active Substance: NIRMATRELVIR\RITONAVIR
     Indication: COVID-19
     Dosage: OTHER QUANTITY : 3 TABLET(S);?OTHER FREQUENCY : 2 AM, 1 PM;?
     Route: 048
     Dates: start: 20220828, end: 20220901
  2. LISINOPRIL [Concomitant]
     Active Substance: LISINOPRIL
  3. PROLIA [Concomitant]
     Active Substance: DENOSUMAB
  4. YUVAFEM [Concomitant]
     Active Substance: ESTRADIOL HEMIHYDRATE
  5. CALCIPOTRIENE [Concomitant]
     Active Substance: CALCIPOTRIENE
  6. Spectravite [Concomitant]
  7. CALCIUM [Concomitant]
     Active Substance: CALCIUM
  8. cranberry tablet [Concomitant]
  9. LORATADINE [Concomitant]
     Active Substance: LORATADINE

REACTIONS (7)
  - COVID-19 [None]
  - SARS-CoV-2 test positive [None]
  - Nonspecific reaction [None]
  - Cough [None]
  - Lymphadenopathy [None]
  - Oropharyngeal pain [None]
  - Fatigue [None]

NARRATIVE: CASE EVENT DATE: 20220907
